FAERS Safety Report 18614816 (Version 1)
Quarter: 2020Q4

REPORT INFORMATION
  Report Type: Not Available
  Country: None (occurrence: None)
  Receive Date: 20201214
  Receipt Date: 20201214
  Transmission Date: 20210114
  Serious: Yes (Other)
  Sender: FDA-Public Use
  Company Number: US-AKORN PHARMACEUTICALS-2020AKN00732

PATIENT
  Age: 24 Year
  Sex: Female
  Weight: 64 kg

DRUGS (1)
  1. MYORISAN [Suspect]
     Active Substance: ISOTRETINOIN

REACTIONS (10)
  - Dry skin [Unknown]
  - Off label use [Recovered/Resolved]
  - Abdominal distension [Unknown]
  - Cheilitis [Unknown]
  - Mucous stools [Unknown]
  - Abdominal pain upper [Unknown]
  - Lip dry [Unknown]
  - Gastrointestinal motility disorder [Unknown]
  - Flatulence [Unknown]
  - Irritable bowel syndrome [Unknown]
